FAERS Safety Report 4457284-3 (Version None)
Quarter: 2004Q3

REPORT INFORMATION
  Report Type: 
  Country: None (occurrence: None)
  Receive Date: 20040922
  Receipt Date: 20040909
  Transmission Date: 20050211
  Serious: Yes (Other)
  Sender: FDA-Public Use
  Company Number: 2004034100

PATIENT
  Sex: Female
  Weight: 56.6996 kg

DRUGS (5)
  1. ZOLOFT [Suspect]
     Indication: DEPRESSION
     Dosage: 50 MG (50 MG, 1 IN 1 D) , ORAL
     Route: 048
     Dates: start: 19980101
  2. CIMICIFUGA RACEMOSA ROOT (CIMICIFUGA RACEMOSA ROOT) [Suspect]
     Indication: ILL-DEFINED DISORDER
  3. ALLERGY MEDICATION (ALLERGY MEDICATION) [Concomitant]
  4. MULTIVITAMINS (ASCORBIC ACID/ERGOCALCIFEROL/FOLIC ACID/NICOTINAMIDE/PA [Concomitant]
  5. TEA, GREEN (TEA, GREEN) [Concomitant]

REACTIONS (7)
  - ANXIETY [None]
  - BIOPSY UTERUS ABNORMAL [None]
  - BREAST CYST [None]
  - DEPRESSION [None]
  - ENDOMETRIOSIS [None]
  - ORAL CANDIDIASIS [None]
  - PRECANCEROUS CELLS PRESENT [None]
